FAERS Safety Report 17151834 (Version 2)
Quarter: 2019Q4

REPORT INFORMATION
  Report Type: Spontaneous
  Country: US (occurrence: US)
  Receive Date: 20191213
  Receipt Date: 20191227
  Transmission Date: 20200122
  Serious: Yes (Death, Other)
  Sender: FDA-Public Use
  Company Number: US-PFIZER INC-2019536282

PATIENT
  Age: 58 Year
  Sex: Female
  Weight: 132 kg

DRUGS (2)
  1. GENOTROPIN MQ [Suspect]
     Active Substance: SOMATROPIN
     Indication: PITUITARY TUMOUR BENIGN
     Dosage: 0.4 MG, DAILY
     Route: 058
     Dates: start: 20191209
  2. GENOTROPIN MQ [Suspect]
     Active Substance: SOMATROPIN
     Indication: POSTOPERATIVE HYPOPITUITARISM

REACTIONS (5)
  - Death [Fatal]
  - Blood cholesterol increased [Unknown]
  - Cushing^s syndrome [Unknown]
  - Blood triglycerides increased [Unknown]
  - Nasopharyngitis [Unknown]
